FAERS Safety Report 4590851-5 (Version None)
Quarter: 2005Q1

REPORT INFORMATION
  Report Type: 
  Country: None (occurrence: None)
  Receive Date: 20050225
  Receipt Date: 20050218
  Transmission Date: 20050727
  Serious: Yes (Hospitalization, Other)
  Sender: FDA-Public Use
  Company Number: PHEH2005US02284

PATIENT
  Age: 48 Year
  Sex: Female

DRUGS (1)
  1. CLOZARIL [Suspect]
     Indication: SCHIZOPHRENIA
     Dosage: 700 MG, QD
     Route: 048
     Dates: start: 20030101, end: 20050201

REACTIONS (4)
  - LEUKOCYTOSIS [None]
  - LEUKOPENIA [None]
  - LYMPHOMA [None]
  - PSYCHOTIC DISORDER [None]
